FAERS Safety Report 8153203-7 (Version None)
Quarter: 2012Q1

REPORT INFORMATION
  Report Type: 
  Country: None (occurrence: None)
  Receive Date: 20120221
  Receipt Date: 20120207
  Transmission Date: 20120608
  Serious: Yes (Other)
  Sender: FDA-Public Use
  Company Number: CA-UCBSA-032054

PATIENT
  Age: 54 Year
  Sex: Female

DRUGS (3)
  1. TYKERB [Interacting]
     Indication: BREAST CANCER
     Route: 048
     Dates: start: 20110416, end: 20120111
  2. TYKERB [Interacting]
     Indication: BREAST CANCER METASTATIC
     Route: 048
     Dates: start: 20110416, end: 20120111
  3. KEPPRA [Suspect]
     Indication: CONVULSION

REACTIONS (3)
  - CONVULSION [None]
  - NEOPLASM MALIGNANT [None]
  - DRUG INTERACTION [None]
